FAERS Safety Report 8318921-6 (Version None)
Quarter: 2012Q2

REPORT INFORMATION
  Report Type: 
  Country: None (occurrence: None)
  Receive Date: 20120427
  Receipt Date: 20120417
  Transmission Date: 20120825
  Serious: Yes (Other)
  Sender: FDA-Public Use
  Company Number: US-JNJFOC-20120408089

PATIENT
  Sex: Female
  Weight: 70.31 kg

DRUGS (13)
  1. TOPAMAX [Suspect]
     Indication: MIGRAINE PROPHYLAXIS
     Route: 048
  2. ETHYL CHLORIDE [Concomitant]
     Indication: PAIN
     Route: 061
  3. TRAZODONE HCL [Concomitant]
     Indication: SLEEP DISORDER
     Dosage: BEDTIME
     Route: 048
     Dates: start: 19960101
  4. KLONOPIN [Concomitant]
     Indication: SLEEP DISORDER
     Dosage: BEDTIME
     Route: 048
  5. HYDROCODONE BITARTRATE + ACETAMINOPHEN [Concomitant]
     Indication: BREAKTHROUGH PAIN
     Dosage: BEDTIME
     Route: 048
  6. SKELAXIN [Concomitant]
     Indication: MUSCLE RELAXANT THERAPY
     Route: 048
  7. TOPAMAX [Suspect]
     Route: 048
     Dates: start: 20040101
  8. VOLTAREN [Concomitant]
     Indication: PRODUCT USED FOR UNKNOWN INDICATION
     Route: 061
  9. FROVA [Concomitant]
     Indication: MIGRAINE
     Dosage: UP TO 18 A MONTH
     Route: 048
  10. RELAFEN [Concomitant]
     Indication: PAIN
     Dosage: BEDTIME
     Route: 048
  11. OXYCONTIN [Concomitant]
     Indication: PAIN
     Route: 048
     Dates: start: 20010101
  12. TOPIRAMATE [Suspect]
     Indication: MIGRAINE PROPHYLAXIS
     Route: 048
  13. NEURONTIN [Concomitant]
     Indication: NEURALGIA
     Dosage: BEDTIME
     Route: 048

REACTIONS (2)
  - DYSLEXIA [None]
  - AMNESIA [None]
